FAERS Safety Report 4982225-X (Version None)
Quarter: 2006Q2

REPORT INFORMATION
  Report Type: 
  Country: None (occurrence: None)
  Receive Date: 20060425
  Receipt Date: 20060414
  Transmission Date: 20061013
  Serious: Yes (Other)
  Sender: FDA-Public Use
  Company Number: JP-AVENTIS-200611244JP

PATIENT
  Age: 71 Year
  Sex: Male

DRUGS (3)
  1. AMARYL [Suspect]
     Route: 048
  2. ANGIOTENSIN II ANTAGONISTS [Suspect]
  3. CALCIUM CHANNEL BLOCKERS [Suspect]

REACTIONS (1)
  - BLOOD POTASSIUM INCREASED [None]
